FAERS Safety Report 21163179 (Version 3)
Quarter: 2022Q4

REPORT INFORMATION
  Report Type: Report from Study
  Country: HU (occurrence: HU)
  Receive Date: 20220802
  Receipt Date: 20221025
  Transmission Date: 20230113
  Serious: Yes (Death, Hospitalization)
  Sender: FDA-Public Use
  Company Number: HU-Accord-240961

PATIENT
  Age: 68 Year
  Sex: Male
  Weight: 74.2 kg

DRUGS (6)
  1. GEMCITABINE HYDROCHLORIDE [Suspect]
     Active Substance: GEMCITABINE HYDROCHLORIDE
     Indication: Diffuse large B-cell lymphoma
     Dosage: 1000 MG/M2, CYCLICAL, 1Q2W
     Route: 042
     Dates: start: 20210907, end: 20210907
  2. OXALIPLATIN [Concomitant]
     Active Substance: OXALIPLATIN
     Indication: Diffuse large B-cell lymphoma
     Dosage: 100 MG/M2, CYCLICAL, 1Q2W
     Route: 042
     Dates: start: 20210907, end: 20210907
  3. RITUXIMAB [Concomitant]
     Active Substance: RITUXIMAB
     Indication: Diffuse large B-cell lymphoma
     Dosage: 375 MG/M2, CYCLICAL, 1Q2W
     Route: 042
     Dates: start: 20210906, end: 20210906
  4. ACYCLOVIR [Concomitant]
     Active Substance: ACYCLOVIR
     Indication: Product used for unknown indication
     Dosage: UNK UNK, UNKNOWN
     Route: 065
     Dates: start: 2018, end: 20210923
  5. ENOXAPARIN SODIUM [Concomitant]
     Active Substance: ENOXAPARIN SODIUM
     Indication: Product used for unknown indication
     Dosage: UNK, UNKNOWN
     Route: 065
     Dates: start: 2021, end: 20210923
  6. CONTROLOC [Concomitant]
     Active Substance: PANTOPRAZOLE SODIUM
     Indication: Product used for unknown indication
     Dosage: UNK, UNKNOWN
     Route: 065
     Dates: start: 2018, end: 20210923

REACTIONS (1)
  - Neutropenic sepsis [Fatal]

NARRATIVE: CASE EVENT DATE: 20210914
